FAERS Safety Report 6454622-7 (Version None)
Quarter: 2009Q4

REPORT INFORMATION
  Report Type: 
  Country: None (occurrence: None)
  Receive Date: 20091118
  Receipt Date: 20091103
  Transmission Date: 20100525
  Serious: Yes (Death, Hospitalization)
  Sender: FDA-Public Use
  Company Number: 20090523

PATIENT
  Age: 54 Year
  Sex: Male

DRUGS (6)
  1. DEXAMETHASONE SODIUM PHOSPHATE [Suspect]
     Indication: MULTIPLE MYELOMA
     Dosage: INJECTION NOS
  2. CISPLATIN [Suspect]
  3. VINCRISTINE [Suspect]
  4. METHYLPREDNISOLONE [Suspect]
  5. CYCLOPHOSPHAMIDE [Suspect]
  6. DOXORUBICIN [Concomitant]

REACTIONS (4)
  - BACTERIAL SEPSIS [None]
  - CARDIAC ARREST [None]
  - LEUKAEMIA PLASMACYTIC [None]
  - PLASMACYTOMA [None]
